FAERS Safety Report 14783905 (Version 1)
Quarter: 2018Q2

REPORT INFORMATION
  Report Type: Spontaneous
  Country: FR (occurrence: FR)
  Receive Date: 20180420
  Receipt Date: 20180420
  Transmission Date: 20180711
  Serious: Yes (Hospitalization)
  Sender: FDA-Public Use
  Company Number: FR-ABBVIE-18P-056-2327357-00

PATIENT
  Age: 60 Year
  Sex: Female

DRUGS (6)
  1. ATARAX [Interacting]
     Active Substance: HYDROXYZINE HYDROCHLORIDE
     Indication: INSOMNIA
     Route: 048
     Dates: end: 20180315
  2. THERALENE [Interacting]
     Active Substance: TRIMEPRAZINE
     Indication: MENTAL DISORDER
     Route: 048
     Dates: end: 20180315
  3. PAROXETINE. [Interacting]
     Active Substance: PAROXETINE
     Indication: DEPRESSION
     Route: 048
     Dates: end: 20180315
  4. LOXAPAC [Interacting]
     Active Substance: LOXAPINE
     Indication: MENTAL DISORDER
     Route: 048
     Dates: end: 20180315
  5. DEPAKOTE [Suspect]
     Active Substance: DIVALPROEX SODIUM
     Indication: MENTAL DISORDER
     Route: 048
     Dates: end: 20180315
  6. PRAZEPAM [Interacting]
     Active Substance: PRAZEPAM
     Indication: ANXIETY
     Route: 048
     Dates: end: 20180315

REACTIONS (2)
  - Neuroleptic malignant syndrome [Not Recovered/Not Resolved]
  - Potentiating drug interaction [Not Recovered/Not Resolved]

NARRATIVE: CASE EVENT DATE: 20180315
